FAERS Safety Report 6896394-8 (Version None)
Quarter: 2010Q3

REPORT INFORMATION
  Report Type: 
  Country: None (occurrence: None)
  Receive Date: 20100802
  Receipt Date: 20090128
  Transmission Date: 20110219
  Serious: No
  Sender: FDA-Public Use
  Company Number: US-PFIZER INC-2009163162

PATIENT
  Sex: Female
  Weight: 58.5 kg

DRUGS (3)
  1. AMLODIPINE BESYLATE [Suspect]
     Indication: HYPERTENSION
     Dosage: 5 MG, 1X/DAY
  2. ACETYLSALICYLIC ACID [Concomitant]
     Dosage: UNK
  3. PREMPRO [Concomitant]
     Dosage: UNK

REACTIONS (1)
  - RASH [None]
